FAERS Safety Report 25231661 (Version 1)
Quarter: 2025Q2

REPORT INFORMATION
  Report Type: Spontaneous
  Country: FR (occurrence: FR)
  Receive Date: 20250423
  Receipt Date: 20250423
  Transmission Date: 20250717
  Serious: Yes (Hospitalization)
  Sender: TEVA
  Company Number: None

PATIENT
  Age: 75 Year
  Sex: Male

DRUGS (2)
  1. MYCOPHENOLATE MOFETIL [Suspect]
     Active Substance: MYCOPHENOLATE MOFETIL
     Indication: Transplant
     Route: 048
     Dates: start: 20240201, end: 20241121
  2. TACROLIMUS [Suspect]
     Active Substance: TACROLIMUS
     Indication: Transplant
     Route: 048
     Dates: start: 20240201

REACTIONS (1)
  - Pancreatitis acute [Not Recovered/Not Resolved]

NARRATIVE: CASE EVENT DATE: 20241101
